FAERS Safety Report 16660985 (Version 1)
Quarter: 2019Q3

REPORT INFORMATION
  Report Type: Spontaneous
  Country: GB (occurrence: GB)
  Receive Date: 20190801
  Receipt Date: 20190801
  Transmission Date: 20191004
  Serious: Yes (Other)
  Sender: FDA-Public Use
  Company Number: None

PATIENT
  Age: 42 Year
  Sex: Female
  Weight: 56.25 kg

DRUGS (5)
  1. BETNOVATE [Suspect]
     Active Substance: BETAMETHASONE
     Indication: ECZEMA
     Route: 061
     Dates: start: 20051024, end: 20111024
  2. QVAR [Concomitant]
     Active Substance: BECLOMETHASONE DIPROPIONATE
  3. HYDROCORTISONE. [Suspect]
     Active Substance: HYDROCORTISONE
     Indication: ECZEMA
     Route: 061
     Dates: start: 20011024, end: 20111024
  4. VENTOLIN [Concomitant]
     Active Substance: ALBUTEROL SULFATE
  5. VITAMIN D [Concomitant]
     Active Substance: VITAMIN D NOS

REACTIONS (13)
  - Drug abuse [None]
  - Dependence [None]
  - Drug withdrawal syndrome [None]
  - Pain of skin [None]
  - Skin swelling [None]
  - Generalised anxiety disorder [None]
  - Pruritus [None]
  - Skin weeping [None]
  - Depression [None]
  - Sleep disorder [None]
  - Pain [None]
  - Skin burning sensation [None]
  - Social anxiety disorder [None]

NARRATIVE: CASE EVENT DATE: 20111024
